FAERS Safety Report 7206907-4 (Version None)
Quarter: 2010Q4

REPORT INFORMATION
  Report Type: 
  Country: None (occurrence: None)
  Receive Date: 20101230
  Receipt Date: 20101230
  Transmission Date: 20110411
  Serious: Yes (Hospitalization)
  Sender: FDA-Public Use
  Company Number: None

PATIENT
  Sex: Male
  Weight: 77.4 kg

DRUGS (2)
  1. CARBOPLATIN [Suspect]
     Dosage: 509 MG
     Dates: end: 20101130
  2. ETOPOSIDE [Suspect]
     Dosage: 423 MG
     Dates: end: 20101202

REACTIONS (3)
  - BACK PAIN [None]
  - HYPERTENSION [None]
  - PALPITATIONS [None]
